FAERS Safety Report 10922728 (Version 1)
Quarter: 2015Q1

REPORT INFORMATION
  Report Type: Spontaneous
  Country: US (occurrence: US)
  Receive Date: 20150317
  Receipt Date: 20150317
  Transmission Date: 20150721
  Serious: Yes (Hospitalization)
  Sender: FDA-Public Use
  Company Number: US-SA-2015SA031951

PATIENT
  Age: 36 Year
  Sex: Male

DRUGS (2)
  1. XANAX [Suspect]
     Active Substance: ALPRAZOLAM
     Route: 065
  2. NASACORT ALLERGY 24HR [Suspect]
     Active Substance: TRIAMCINOLONE ACETONIDE
     Indication: HYPERSENSITIVITY
     Dosage: TAKEN FROM:5-6 WEEKS AGO, DOSE: NASACORT 24 HR SPRAY
     Route: 065

REACTIONS (4)
  - Contusion [Unknown]
  - Insomnia [Unknown]
  - Psychotic disorder [Unknown]
  - Agitation [Unknown]
